FAERS Safety Report 4755519-0 (Version None)
Quarter: 2005Q3

REPORT INFORMATION
  Report Type: 
  Country: None (occurrence: None)
  Receive Date: 20050830
  Receipt Date: 20050503
  Transmission Date: 20060218
  Serious: No
  Sender: FDA-Public Use
  Company Number: US-BRISTOL-MYERS SQUIBB COMPANY-12955324

PATIENT
  Age: 68 Year
  Sex: Female
  Weight: 73 kg

DRUGS (5)
  1. ABILIFY [Suspect]
     Indication: ASTHENIA
  2. LITHIUM [Concomitant]
  3. LORAZEPAM [Concomitant]
  4. ZYPREXA [Concomitant]
  5. LEXAPRO [Concomitant]

REACTIONS (1)
  - AGGRESSION [None]
